FAERS Safety Report 23327208 (Version 1)
Quarter: 2023Q4

REPORT INFORMATION
  Report Type: Spontaneous
  Country: CN (occurrence: CN)
  Receive Date: 20231221
  Receipt Date: 20231221
  Transmission Date: 20240110
  Serious: Yes (Hospitalization, Other)
  Sender: FDA-Public Use
  Company Number: None

PATIENT
  Age: 4 Year
  Sex: Female
  Weight: 19.5 kg

DRUGS (8)
  1. CYCLOPHOSPHAMIDE [Suspect]
     Active Substance: CYCLOPHOSPHAMIDE
     Indication: Neoplasm malignant
     Dosage: 0.76 G, ONE TIME IN ONE DAY, DILUTED WITH 250 ML OF 4:1 GLUCOSE AND SODIUM CHLORIDE, AS A PART OF CA
     Route: 041
     Dates: start: 20231010, end: 20231010
  2. CYCLOPHOSPHAMIDE [Suspect]
     Active Substance: CYCLOPHOSPHAMIDE
     Indication: Chemotherapy
  3. DEXTROSE\SODIUM CHLORIDE [Suspect]
     Active Substance: DEXTROSE\SODIUM CHLORIDE
     Indication: Medication dilution
     Dosage: 250 ML, ONE TIME IN ONE DAY, DOSAGE FORM: INJECTION, 4:1, USED TO DILUTE 0.76 G OF CYCLOPHOSPHAMIDE
     Route: 041
     Dates: start: 20231010, end: 20231010
  4. SODIUM CHLORIDE [Suspect]
     Active Substance: SODIUM CHLORIDE
     Indication: Medication dilution
     Dosage: 1 ML, BID, DOSAGE FORM: INJECTION, STRENGTH: 0.9%, USED TO DILUTE 0.029 G OF CYTARABINE
     Route: 058
     Dates: start: 20231010, end: 20231013
  5. CYTARABINE [Suspect]
     Active Substance: CYTARABINE
     Indication: Neoplasm malignant
     Dosage: 0.029 G, BID, DILUTED WITH 1 ML OF 0.9 % SODIUM CHLORIDE, AS A PART OF CAM REGIMEN CHEMOTHERAPY
     Route: 058
     Dates: start: 20231010, end: 20231013
  6. CYTARABINE [Suspect]
     Active Substance: CYTARABINE
     Indication: Chemotherapy
  7. MERCAPTOPURINE [Suspect]
     Active Substance: MERCAPTOPURINE
     Indication: Neoplasm malignant
     Dosage: 37.5 MG, ONE TIME IN ONE DAY(QN), AS A PART OF CAM REGIMEN CHEMOTHERAPY
     Route: 048
     Dates: start: 20231010, end: 20231023
  8. MERCAPTOPURINE [Suspect]
     Active Substance: MERCAPTOPURINE
     Indication: Chemotherapy

REACTIONS (1)
  - Myelosuppression [Recovering/Resolving]

NARRATIVE: CASE EVENT DATE: 20231021
